FAERS Safety Report 10056137 (Version 1)
Quarter: 2014Q2

REPORT INFORMATION
  Report Type: Spontaneous
  Country: US (occurrence: US)
  Receive Date: 20140403
  Receipt Date: 20140403
  Transmission Date: 20141212
  Serious: No
  Sender: FDA-Public Use
  Company Number: US-PFIZER INC-2014093971

PATIENT
  Age: 42 Year
  Sex: Female
  Weight: 63.49 kg

DRUGS (3)
  1. LYRICA [Suspect]
     Indication: FIBROMYALGIA
     Dosage: 50 MG, 2X/DAY
     Dates: start: 201304, end: 201307
  2. ALPRAZOLAM [Concomitant]
     Indication: ANXIETY
     Dosage: 2 MG, DAILY
  3. ALPRAZOLAM [Concomitant]
     Indication: PANIC ATTACK

REACTIONS (2)
  - Euphoric mood [Unknown]
  - Logorrhoea [Unknown]
